FAERS Safety Report 4655585-7 (Version None)
Quarter: 2005Q2

REPORT INFORMATION
  Report Type: 
  Country: None (occurrence: None)
  Receive Date: 20050505
  Receipt Date: 20050414
  Transmission Date: 20051028
  Serious: No
  Sender: FDA-Public Use
  Company Number: USA050495686

PATIENT
  Age: 60 Year
  Sex: Female

DRUGS (7)
  1. CYMBALTA [Suspect]
     Indication: DIABETIC NEUROPATHY
     Dosage: 60 MG/TWICE DAY
     Dates: start: 20041101
  2. INSULIN [Concomitant]
  3. PROTONIX [Concomitant]
  4. NEURONTIN (GABAPENTIN PFIZER) [Concomitant]
  5. SYNTHROID [Concomitant]
  6. SOMA [Concomitant]
  7. POTASSIUM CHLORIDE [Concomitant]

REACTIONS (4)
  - CHEST PAIN [None]
  - CHROMATURIA [None]
  - FULL BLOOD COUNT DECREASED [None]
  - HYPERHIDROSIS [None]
